FAERS Safety Report 4816366-4 (Version None)
Quarter: 2005Q4

REPORT INFORMATION
  Report Type: 
  Country: None (occurrence: None)
  Receive Date: 20051028
  Receipt Date: 20051017
  Transmission Date: 20060501
  Serious: Yes (Hospitalization)
  Sender: FDA-Public Use
  Company Number: 2005144654

PATIENT
  Age: 51 Year
  Sex: Male
  Weight: 90 kg

DRUGS (7)
  1. SOLU-MEDROL [Suspect]
     Dosage: 120 MG (1 D) INTRAVENOUS
     Route: 042
     Dates: end: 20050101
  2. FLUOROURACIL [Suspect]
     Indication: RECTAL CANCER
     Dosage: 5.6 GRAM (1 D) INTRAVENOUS
     Route: 042
     Dates: end: 20050101
  3. OXALIPLATIN (OXALIPLATIN) [Suspect]
     Indication: RECTAL CANCER
     Dosage: 170 MG (1 D) INTRAVENOUS
     Route: 042
     Dates: end: 20050718
  4. LEUCOVORIN CALCIUM [Suspect]
     Indication: RECTAL CANCER
     Dosage: 800 MG (1 D) INTRAVENOUS
     Route: 042
     Dates: end: 20050101
  5. ZOFRAN [Suspect]
     Indication: ILL-DEFINED DISORDER
     Dosage: INTRAVENOUS
     Route: 042
  6. KYTRIL [Suspect]
     Dosage: INTRAVENOUS
     Route: 042
     Dates: end: 20050101
  7. DOMPERIDONE (DOMPERIDONE) [Concomitant]

REACTIONS (7)
  - DRUG INEFFECTIVE [None]
  - HAEMATURIA [None]
  - HAEMOGLOBIN DECREASED [None]
  - PETECHIAE [None]
  - PURPURA [None]
  - THROMBOCYTOPENIA [None]
  - WHITE BLOOD CELL COUNT DECREASED [None]
